FAERS Safety Report 7895232-4 (Version None)
Quarter: 2011Q4

REPORT INFORMATION
  Report Type: 
  Country: None (occurrence: None)
  Receive Date: 20111106
  Receipt Date: 20110824
  Transmission Date: 20120403
  Serious: No
  Sender: FDA-Public Use
  Company Number: US-AMGEN-USASP2011043373

PATIENT
  Age: 31 Year
  Sex: Female

DRUGS (3)
  1. ENBREL [Suspect]
     Indication: RHEUMATOID ARTHRITIS
     Dosage: 50 MG, QWK
     Dates: start: 20110801
  2. TREXALL [Concomitant]
     Dosage: 1 MG, UNK
     Dates: start: 20110201
  3. PLAQUENIL [Concomitant]
     Dosage: 1 MG, UNK
     Dates: start: 20101001

REACTIONS (2)
  - SKIN WARM [None]
  - PRURITUS [None]
